FAERS Safety Report 6774177-7 (Version None)
Quarter: 2010Q2

REPORT INFORMATION
  Report Type: 
  Country: None (occurrence: None)
  Receive Date: 20100616
  Receipt Date: 20100616
  Transmission Date: 20101027
  Serious: Yes (Other)
  Sender: FDA-Public Use
  Company Number: None

PATIENT
  Sex: Male
  Weight: 66.6788 kg

DRUGS (1)
  1. CLINDAMYCIN [Suspect]
     Indication: OSTEOMYELITIS
     Dosage: 875 MG TID IV
     Route: 042
     Dates: start: 20100525, end: 20100614

REACTIONS (2)
  - PRURITUS [None]
  - RASH [None]
